FAERS Safety Report 25949644 (Version 2)
Quarter: 2025Q4

REPORT INFORMATION
  Report Type: Report from Study
  Country: US (occurrence: US)
  Receive Date: 20251022
  Receipt Date: 20251215
  Transmission Date: 20260117
  Serious: Yes (Other)
  Sender: OTSUKA
  Company Number: US-MMM-Otsuka-UHEB4ML0

PATIENT
  Age: 50 Year
  Sex: Female

DRUGS (10)
  1. TOLVAPTAN [Suspect]
     Active Substance: TOLVAPTAN
     Indication: Congenital cystic kidney disease
     Dosage: UNK
     Route: 065
  2. KEFLEX [Concomitant]
     Active Substance: CEPHALEXIN
     Indication: Product used for unknown indication
     Dosage: 500 MG, TID (1 CAPSULE THREE TIMES A DAY FOR 7 DAYS)
     Route: 061
  3. APRESOLINE HYDROCHLORIDE [Concomitant]
     Active Substance: HYDRALAZINE HYDROCHLORIDE
     Indication: Product used for unknown indication
     Dosage: 100 MG, BID
     Route: 061
  4. CARDIZEM CD [Concomitant]
     Active Substance: DILTIAZEM HYDROCHLORIDE
     Indication: Product used for unknown indication
     Dosage: 1 DF, QD (SUSTAINED RELEASE 24 HR)
     Route: 061
  5. CARTIA XT [Concomitant]
     Active Substance: DILTIAZEM HYDROCHLORIDE
     Indication: Product used for unknown indication
     Dosage: 1 DF, QD (SUSTAINED RELEASE 24 HR)
     Route: 061
  6. COZAAR [Concomitant]
     Active Substance: LOSARTAN POTASSIUM
     Indication: Product used for unknown indication
     Dosage: 50 MG, QD (1 TABLET AT BEDTIME, HOLD IF SYSTOLIC { 115)
     Route: 061
  7. PROTONIX [Concomitant]
     Active Substance: PANTOPRAZOLE SODIUM
     Indication: Product used for unknown indication
     Dosage: 40 MG, QD (EVERY NIGHT, AT BEDTIME)
     Route: 061
  8. ZYLOPRIM [Concomitant]
     Active Substance: ALLOPURINOL
     Indication: Product used for unknown indication
     Dosage: 100 MG
     Route: 065
  9. CRESTOR [Concomitant]
     Active Substance: ROSUVASTATIN CALCIUM
     Indication: Product used for unknown indication
     Dosage: 1 DF, QD (EVERY NIGHT, AT BEDTIME)
     Route: 061
  10. CRESTOR [Concomitant]
     Active Substance: ROSUVASTATIN CALCIUM
     Dosage: UNK (DECREASED DOSE DUE TO RENAL FUNCTION)
     Route: 061

REACTIONS (8)
  - Acute kidney injury [Unknown]
  - Nasal disorder [Unknown]
  - Peripheral swelling [Unknown]
  - Gastric polyps [Unknown]
  - Gastrointestinal disorder [Unknown]
  - Haemorrhoids [Unknown]
  - Urinary tract infection [Not Recovered/Not Resolved]
  - Gastrooesophageal reflux disease [Unknown]

NARRATIVE: CASE EVENT DATE: 20240415
